FAERS Safety Report 25483599 (Version 1)
Quarter: 2025Q2

REPORT INFORMATION
  Report Type: Spontaneous
  Country: US (occurrence: US)
  Receive Date: 20250626
  Receipt Date: 20250626
  Transmission Date: 20250717
  Serious: Yes (Hospitalization)
  Sender: PFIZER
  Company Number: US-PFIZER INC-202500127116

PATIENT
  Sex: Female

DRUGS (1)
  1. HYMPAVZI [Suspect]
     Active Substance: MARSTACIMAB-HNCQ

REACTIONS (3)
  - Fracture [Unknown]
  - Injury [Unknown]
  - Haemophilia [Unknown]
